FAERS Safety Report 7374241-8 (Version None)
Quarter: 2011Q1

REPORT INFORMATION
  Report Type: 
  Country: None (occurrence: None)
  Receive Date: 20110325
  Receipt Date: 20110321
  Transmission Date: 20110831
  Serious: Yes (Other)
  Sender: FDA-Public Use
  Company Number: US-BAYER-2011-025329

PATIENT
  Sex: Female

DRUGS (3)
  1. KLONOPIN [Concomitant]
     Dosage: UNK UNK, HS
  2. IBUPROFEN [Concomitant]
  3. BETAFERON [Suspect]
     Indication: MULTIPLE SCLEROSIS
     Dosage: 2 MIU, QOD
     Route: 058
     Dates: start: 20110315

REACTIONS (7)
  - FATIGUE [None]
  - OBSESSIVE-COMPULSIVE DISORDER [None]
  - MANIA [None]
  - ANXIETY [None]
  - MYDRIASIS [None]
  - INSOMNIA [None]
  - DEPRESSION [None]
